FAERS Safety Report 23953306 (Version 1)
Quarter: 2024Q2

REPORT INFORMATION
  Report Type: Report from Study
  Country: CA (occurrence: CA)
  Receive Date: 20240608
  Receipt Date: 20240608
  Transmission Date: 20240716
  Serious: Yes (Other)
  Sender: FDA-Public Use
  Company Number: CA-ABBVIE-5789286

PATIENT
  Sex: Male

DRUGS (1)
  1. SKYRIZI [Suspect]
     Active Substance: RISANKIZUMAB-RZAA
     Indication: Product used for unknown indication
     Route: 058

REACTIONS (6)
  - Ileostomy [Unknown]
  - Swelling [Unknown]
  - Infection [Unknown]
  - Stoma site pain [Unknown]
  - Stoma site erythema [Unknown]
  - Stoma site reaction [Unknown]

NARRATIVE: CASE EVENT DATE: 20240101
